FAERS Safety Report 22982007 (Version 4)
Quarter: 2024Q1

REPORT INFORMATION
  Report Type: Report from Study
  Country: US (occurrence: US)
  Receive Date: 20230926
  Receipt Date: 20240102
  Transmission Date: 20240410
  Serious: Yes (Hospitalization)
  Sender: FDA-Public Use
  Company Number: US-ABBVIE-5417556

PATIENT
  Sex: Female

DRUGS (1)
  1. IMBRUVICA [Suspect]
     Active Substance: IBRUTINIB
     Indication: Chronic lymphocytic leukaemia
     Dosage: LAST ADMIN DATE: 2023
     Route: 048
     Dates: start: 202309

REACTIONS (14)
  - Illness [Unknown]
  - Dizziness [Unknown]
  - Blood pressure increased [Unknown]
  - Pyrexia [Unknown]
  - Pneumonia bacterial [Unknown]
  - Thrombosis [Unknown]
  - Nausea [Recovering/Resolving]
  - Vomiting [Unknown]
  - Vertigo [Unknown]
  - Blood glucose increased [Unknown]
  - Back pain [Unknown]
  - Diarrhoea [Unknown]
  - Bone pain [Unknown]
  - Emotional disorder [Unknown]

NARRATIVE: CASE EVENT DATE: 20230101
